FAERS Safety Report 16431344 (Version 1)
Quarter: 2019Q2

REPORT INFORMATION
  Report Type: Spontaneous
  Country: US (occurrence: US)
  Receive Date: 20190614
  Receipt Date: 20190614
  Transmission Date: 20190711
  Serious: Yes (Other)
  Sender: FDA-Public Use
  Company Number: US-PFIZER INC-2019249319

PATIENT
  Age: 64 Year
  Sex: Female
  Weight: 48.99 kg

DRUGS (1)
  1. RAPAMUNE [Suspect]
     Active Substance: SIROLIMUS
     Indication: RENAL TRANSPLANT
     Dosage: 1 MG, DAILY
     Route: 048

REACTIONS (2)
  - Uterine cancer [Unknown]
  - Expired product administered [Unknown]

NARRATIVE: CASE EVENT DATE: 201811
